FAERS Safety Report 10644821 (Version 2)
Quarter: 2014Q4

REPORT INFORMATION
  Report Type: Spontaneous
  Country: FR (occurrence: FR)
  Receive Date: 20141211
  Receipt Date: 20141211
  Transmission Date: 20150529
  Serious: Yes (Other)
  Sender: FDA-Public Use
  Company Number: FR-ROCHE-1475936

PATIENT
  Age: 65 Year
  Sex: Male

DRUGS (1)
  1. RANIBIZUMAB [Suspect]
     Active Substance: RANIBIZUMAB
     Indication: AGE-RELATED MACULAR DEGENERATION
     Dosage: 29 REGIMENS
     Route: 065
     Dates: start: 20091009, end: 20091009

REACTIONS (7)
  - Retinal fibrosis [Unknown]
  - Visual acuity reduced [Unknown]
  - Drug resistance [Unknown]
  - Macular detachment [Unknown]
  - Treatment failure [Unknown]
  - Cataract subcapsular [Unknown]
  - Drug effect decreased [Unknown]
